FAERS Safety Report 7093915-X (Version None)
Quarter: 2010Q4

REPORT INFORMATION
  Report Type: 
  Country: None (occurrence: None)
  Receive Date: 20101110
  Receipt Date: 20101102
  Transmission Date: 20110411
  Serious: Yes (Hospitalization)
  Sender: FDA-Public Use
  Company Number: HU-AMGEN-HUNNI2010002944

PATIENT

DRUGS (9)
  1. DARBEPOETIN ALFA [Suspect]
     Indication: RENAL FAILURE CHRONIC
     Dosage: 10 A?G, UNK
     Route: 058
     Dates: start: 20090628
  2. FUROSEMID                          /00032601/ [Concomitant]
     Dosage: 2.5 MG, Q12H
  3. SODIUM CHLORIDE [Concomitant]
     Dosage: 2 UNK, UNK
  4. VIGANTOL                           /00107901/ [Concomitant]
  5. HYPOTHIAZID [Concomitant]
     Dosage: UNK
  6. NORMODIPINE [Concomitant]
  7. SORBIFER                           /00023503/ [Concomitant]
  8. FOLIC ACID [Concomitant]
  9. LEVOTHYROXINE SODIUM [Concomitant]
     Dosage: 25 A?G, UNK

REACTIONS (3)
  - GASTROENTERITIS [None]
  - RED BLOOD CELL COUNT DECREASED [None]
  - WHITE BLOOD CELL COUNT DECREASED [None]
